FAERS Safety Report 9998940 (Version 1)
Quarter: 2014Q1

REPORT INFORMATION
  Report Type: Spontaneous
  Country: US (occurrence: None)
  Receive Date: 20140310
  Receipt Date: 20140310
  Transmission Date: 20141002
  Serious: Yes (Other)
  Sender: FDA-Public Use
  Company Number: 2014P1001881

PATIENT
  Sex: Female

DRUGS (2)
  1. FUROSEMIDE [Suspect]
  2. MAGNESIUM SULFATE [Suspect]
     Route: 042

REACTIONS (5)
  - Maternal exposure during pregnancy [None]
  - Acute respiratory failure [None]
  - Drug interaction [None]
  - Dehydration [None]
  - Electrolyte imbalance [None]
